FAERS Safety Report 20838983 (Version 1)
Quarter: 2022Q2

REPORT INFORMATION
  Report Type: Spontaneous
  Country: US (occurrence: None)
  Receive Date: 20220517
  Receipt Date: 20220517
  Transmission Date: 20220721
  Serious: No
  Sender: FDA-Public Use
  Company Number: None

PATIENT

DRUGS (1)
  1. DROPERIDOL [Suspect]
     Active Substance: DROPERIDOL
     Indication: Product used for unknown indication

REACTIONS (8)
  - Confusional state [None]
  - Nausea [None]
  - Vomiting [None]
  - Cardiac arrest [None]
  - Blood potassium abnormal [None]
  - Torsade de pointes [None]
  - Ventricular tachycardia [None]
  - Ventricular fibrillation [None]
